FAERS Safety Report 21193250 (Version 3)
Quarter: 2022Q4

REPORT INFORMATION
  Report Type: Report from Study
  Country: US (occurrence: US)
  Receive Date: 20220810
  Receipt Date: 20221230
  Transmission Date: 20230113
  Serious: Yes (Death, Hospitalization, Other)
  Sender: FDA-Public Use
  Company Number: US-BIOGEN-2022BI01146052

PATIENT
  Age: 68 Year
  Sex: Female
  Weight: 72.1 kg

DRUGS (2)
  1. TYSABRI [Suspect]
     Active Substance: NATALIZUMAB
     Indication: Graft versus host disease
     Route: 050
     Dates: start: 20180525
  2. TYSABRI [Suspect]
     Active Substance: NATALIZUMAB
     Route: 050
     Dates: start: 20180608

REACTIONS (6)
  - Transplant failure [Fatal]
  - Cytomegalovirus viraemia [Fatal]
  - Cytomegalovirus enteritis [Recovered/Resolved]
  - Acinetobacter bacteraemia [Unknown]
  - Enterococcal infection [Unknown]
  - Neutropenia [Unknown]

NARRATIVE: CASE EVENT DATE: 20180803
